FAERS Safety Report 9855863 (Version 1)
Quarter: 2014Q1

REPORT INFORMATION
  Report Type: Spontaneous
  Country: CA (occurrence: CA)
  Receive Date: 20140130
  Receipt Date: 20140130
  Transmission Date: 20141002
  Serious: Yes (Life-Threatening)
  Sender: FDA-Public Use
  Company Number: CA-B.I. PHARMACEUTICALS,INC./RIDGEFIELD-2014-BI-03829CN

PATIENT
  Age: 70 Year
  Sex: Male
  Weight: 68 kg

DRUGS (7)
  1. SPIRIVA [Suspect]
     Dosage: 18 MCG
     Route: 065
  2. CHEMOTHERAPY [Concomitant]
     Route: 065
  3. FLOVENT [Concomitant]
     Route: 065
  4. PREDNISONE [Concomitant]
     Route: 065
  5. RADIOTHERAPY [Concomitant]
     Route: 065
  6. SEREVENT [Concomitant]
     Route: 065
  7. VENTOLIN [Concomitant]
     Route: 065

REACTIONS (12)
  - Cyanosis [Not Recovered/Not Resolved]
  - Gastric atony [Not Recovered/Not Resolved]
  - Hypoaesthesia [Not Recovered/Not Resolved]
  - Hypokinesia [Not Recovered/Not Resolved]
  - Micturition urgency [Not Recovered/Not Resolved]
  - Muscle disorder [Not Recovered/Not Resolved]
  - Myasthenic syndrome [Not Recovered/Not Resolved]
  - Myocardial infarction [Not Recovered/Not Resolved]
  - Peripheral coldness [Not Recovered/Not Resolved]
  - Respiratory failure [Unknown]
  - Sinusitis [Unknown]
  - Condition aggravated [Not Recovered/Not Resolved]
